FAERS Safety Report 4499206-5 (Version None)
Quarter: 2004Q4

REPORT INFORMATION
  Report Type: 
  Country: None (occurrence: None)
  Receive Date: 20041111
  Receipt Date: 20041104
  Transmission Date: 20050328
  Serious: Yes (Other)
  Sender: FDA-Public Use
  Company Number: US-GLAXOSMITHKLINE-A0532728A

PATIENT
  Age: 61 Year
  Sex: Female

DRUGS (5)
  1. ADVAIR [Suspect]
     Indication: ASTHMA
     Route: 055
     Dates: start: 20020501
  2. FLOVENT [Suspect]
     Indication: ASTHMA
  3. SEREVENT [Suspect]
     Indication: ASTHMA
     Dosage: 1PUFF TWICE PER DAY
     Route: 055
  4. FOSAMAX [Concomitant]
  5. CORTEF [Concomitant]

REACTIONS (7)
  - ADRENAL INSUFFICIENCY [None]
  - DRUG INEFFECTIVE [None]
  - FATIGUE [None]
  - MALAISE [None]
  - MENTAL IMPAIRMENT [None]
  - SECONDARY ADRENOCORTICAL INSUFFICIENCY [None]
  - THINKING ABNORMAL [None]
